FAERS Safety Report 9697186 (Version 1)
Quarter: 2013Q4

REPORT INFORMATION
  Report Type: Spontaneous
  Country: GB (occurrence: GB)
  Receive Date: 20131120
  Receipt Date: 20131120
  Transmission Date: 20140711
  Serious: Yes (Death)
  Sender: FDA-Public Use
  Company Number: GB-ROCHE-1306777

PATIENT
  Sex: 0

DRUGS (2)
  1. RITUXIMAB [Suspect]
     Indication: AUTOIMMUNE DISORDER
     Route: 065
  2. RITUXIMAB [Suspect]
     Indication: LUNG DISORDER

REACTIONS (1)
  - Death [Fatal]
